FAERS Safety Report 11596990 (Version 4)
Quarter: 2016Q2

REPORT INFORMATION
  Report Type: Report from Study
  Country: AT (occurrence: AT)
  Receive Date: 20151006
  Receipt Date: 20160408
  Transmission Date: 20160815
  Serious: Yes (Hospitalization)
  Sender: FDA-Public Use
  Company Number: AT-AMGEN-AUTCT2015100610

PATIENT
  Age: 41 Year
  Sex: Female

DRUGS (22)
  1. TOMAPYRIN [Concomitant]
     Indication: HEADACHE
     Dosage: 250 MG, AS NECESSARY
     Route: 048
     Dates: start: 20090203
  2. VOLTAREN [Concomitant]
     Active Substance: DICLOFENAC SODIUM
     Indication: NECK PAIN
     Dosage: 50 MG, TID
     Route: 048
     Dates: start: 20111020
  3. CETIRIZINE [Concomitant]
     Active Substance: CETIRIZINE HYDROCHLORIDE
     Indication: SEASONAL ALLERGY
     Dosage: 10 MG, QD
     Route: 048
     Dates: start: 20130902
  4. PANTOLOC                           /01263204/ [Concomitant]
     Active Substance: PANTOPRAZOLE SODIUM
     Dosage: 40 MG, QD
     Route: 048
     Dates: start: 20150921
  5. TRAMAL [Concomitant]
     Active Substance: TRAMADOL
     Dosage: UNK UNK, AS NECESSARY
  6. RHEUMESSER                         /01165001/ [Concomitant]
     Indication: NECK PAIN
     Dosage: 3 ML, QD
     Route: 030
  7. SERACTIL [Concomitant]
     Active Substance: DEXIBUPROFEN
     Indication: NECK PAIN
     Dosage: 300 MG, TID
     Route: 048
     Dates: start: 20111013
  8. DEFLAMAT [Concomitant]
     Active Substance: DICLOFENAC SODIUM
     Indication: BACK PAIN
     Dosage: 75 MG, AS NECESSARY
     Route: 048
     Dates: start: 20090507
  9. TOMAPYRIN [Concomitant]
     Indication: PROPHYLAXIS
  10. LIVOSTIN [Concomitant]
     Active Substance: LEVOCABASTINE HYDROCHLORIDE
     Indication: SEASONAL ALLERGY
     Dosage: UNK UNK, BID
     Route: 061
     Dates: start: 20130419
  11. INFLUASS [Concomitant]
     Indication: NASOPHARYNGITIS
     Dosage: 1 DF, TID
     Route: 048
     Dates: start: 20130227
  12. MEXALEN [Concomitant]
     Active Substance: ACETAMINOPHEN
     Indication: NASOPHARYNGITIS
     Dosage: 500 MG, TID
     Route: 048
     Dates: start: 20120308
  13. DENOSUMAB [Suspect]
     Active Substance: DENOSUMAB
     Indication: BONE GIANT CELL TUMOUR
     Dosage: UNK
     Route: 065
     Dates: start: 20090312
  14. KETZOLE [Concomitant]
     Dosage: 2 G, TID
     Route: 042
     Dates: start: 20150921, end: 20150924
  15. NOVALGIN [Concomitant]
     Active Substance: METAMIZOLE SODIUM
     Dosage: 500 MG, TID
     Route: 048
     Dates: start: 20150921
  16. MELOXICAM. [Concomitant]
     Active Substance: MELOXICAM
     Indication: BURSITIS
     Dosage: 15 MG, QD
     Route: 048
     Dates: start: 20091116
  17. SIRDALUD [Concomitant]
     Active Substance: TIZANIDINE
     Indication: NECK PAIN
     Dosage: 6 MG, QD
     Route: 048
     Dates: start: 20111020
  18. VITAMINS WITH MINERALS [Concomitant]
     Active Substance: MINERALS\VITAMINS
     Indication: CALCIUM DEFICIENCY
     Dosage: 1 DF, BID
     Route: 048
     Dates: start: 20100703
  19. NASONEX [Concomitant]
     Active Substance: MOMETASONE FUROATE
     Indication: SEASONAL ALLERGY
     Dosage: UNK UNK, QD
     Route: 045
     Dates: start: 20130419
  20. CETIRIZINE [Concomitant]
     Active Substance: CETIRIZINE HYDROCHLORIDE
     Indication: PROPHYLAXIS
  21. ASPIRIN. [Concomitant]
     Active Substance: ASPIRIN
     Indication: NASOPHARYNGITIS
     Dosage: 1 DF, TID
     Route: 048
     Dates: start: 20130227
  22. SIMVASTATIN. [Concomitant]
     Active Substance: SIMVASTATIN
     Indication: LOW DENSITY LIPOPROTEIN INCREASED
     Dosage: 20 MG, QD
     Route: 048
     Dates: start: 20140116

REACTIONS (1)
  - Bone giant cell tumour [Recovering/Resolving]

NARRATIVE: CASE EVENT DATE: 20150817
